FAERS Safety Report 17676338 (Version 1)
Quarter: 2020Q3

REPORT INFORMATION
  Report Type: Spontaneous
  Country: US (occurrence: US)
  Receive Date: 20200416
  Receipt Date: 20200416
  Transmission Date: 20201104
  Serious: Yes (Other)
  Sender: FDA-Public Use
  Company Number: US-AUROBINDO-AUR-APL-2020-017821

PATIENT
  Age: 67 Year
  Sex: Female

DRUGS (11)
  1. BEVACIZUMAB. [Suspect]
     Active Substance: BEVACIZUMAB
     Indication: OVARIAN EPITHELIAL CANCER
     Dosage: 10 MILLIGRAM/KILOGRAM, CYCLICAL (6 CYCLES)
     Route: 065
  2. CARBOPLATIN. [Suspect]
     Active Substance: CARBOPLATIN
     Indication: OVARIAN EPITHELIAL CANCER
     Dosage: AT A DOSAGE OF AREA UNDER THE CURVE (AU C) = 6
     Route: 065
  3. MIRVETUXIMAB SORAVTANSINE [Suspect]
     Active Substance: MIRVETUXIMAB SORAVTANSINE
     Indication: OVARIAN EPITHELIAL CANCER
     Dosage: 5 MILLIGRAM/KILOGRAM
     Route: 065
  4. CISPLATIN. [Suspect]
     Active Substance: CISPLATIN
     Indication: OVARIAN EPITHELIAL CANCER
     Dosage: 30 MILLIGRAM/SQ. METER
     Route: 065
  5. LIPOSOMAL DOXORUBICIN HYDROCHLORIDE [Suspect]
     Active Substance: DOXORUBICIN HYDROCHLORIDE
     Indication: OVARIAN EPITHELIAL CANCER
     Dosage: 40 MILLIGRAM/SQ. METER
     Route: 065
  6. OLAPARIB. [Suspect]
     Active Substance: OLAPARIB
     Indication: OVARIAN EPITHELIAL CANCER
     Dosage: 300 MILLIGRAM, TWO TIMES A DAY
     Route: 065
  7. PACLITAXEL. [Suspect]
     Active Substance: PACLITAXEL
     Indication: OVARIAN EPITHELIAL CANCER
     Dosage: 80 MILLIGRAM/SQ. METER, CYCLICAL (4 CYCLES)
     Route: 065
  8. PACLITAXEL. [Suspect]
     Active Substance: PACLITAXEL
     Dosage: 175 MILLIGRAM/SQ. METER, CYCLICAL (6 CYCLES)
     Route: 065
  9. CEDIRANIB. [Suspect]
     Active Substance: CEDIRANIB
     Indication: OVARIAN EPITHELIAL CANCER
     Dosage: 20 MILLIGRAM
     Route: 065
  10. TOPOTECAN [Suspect]
     Active Substance: TOPOTECAN HYDROCHLORIDE
     Indication: OVARIAN EPITHELIAL CANCER
     Dosage: 2 MILLIGRAM/SQ. METER, CYCLICAL (2 CYCLES)
     Route: 065
  11. GEMCITABINE. [Suspect]
     Active Substance: GEMCITABINE
     Indication: OVARIAN EPITHELIAL CANCER
     Dosage: 800 MILLIGRAM/SQ. METER, CYCLICAL (5 CYCLES)
     Route: 065

REACTIONS (1)
  - Treatment failure [Unknown]
